FAERS Safety Report 5572707-4 (Version None)
Quarter: 2007Q4

REPORT INFORMATION
  Report Type: 
  Country: None (occurrence: None)
  Receive Date: 20071130
  Receipt Date: 20071015
  Transmission Date: 20080405
  Serious: No
  Sender: FDA-Public Use
  Company Number: US-JNFJOC-20071004492

PATIENT
  Age: 63 Year
  Sex: Male
  Weight: 87.9978 kg

DRUGS (2)
  1. DACOGEN [Suspect]
     Indication: MYELODYSPLASTIC SYNDROME
     Dosage: , IN 1 DAY, INTRAVENOUS
     Route: 042
     Dates: start: 20070924, end: 20070928
  2. COZAAR (LOSARTAN POTASSIUM) UNSPECIFIED [Concomitant]

REACTIONS (3)
  - ABDOMINAL DISTENSION [None]
  - DIARRHOEA [None]
  - PLATELET COUNT DECREASED [None]
